FAERS Safety Report 25524390 (Version 1)
Quarter: 2025Q3

REPORT INFORMATION
  Report Type: Spontaneous
  Country: US (occurrence: None)
  Receive Date: 20250704
  Receipt Date: 20250704
  Transmission Date: 20251020
  Serious: Yes (Disabling)
  Sender: FDA-CTU
  Company Number: None

PATIENT
  Age: 33 Year
  Sex: Female
  Weight: 125.1 kg

DRUGS (16)
  1. TRAZODONE [Suspect]
     Active Substance: TRAZODONE HYDROCHLORIDE
     Indication: Insomnia
     Dosage: OTHER QUANTITY : 1 TABLET(S);?FREQUENCY : AT BEDTIME;?
     Route: 048
     Dates: start: 20250512
  2. BUPROPION [Concomitant]
     Active Substance: BUPROPION
  3. SERTRALINE [Concomitant]
     Active Substance: SERTRALINE HYDROCHLORIDE
  4. ARIPIPRAZOLE [Concomitant]
     Active Substance: ARIPIPRAZOLE
  5. LAMOTRIGINE [Concomitant]
     Active Substance: LAMOTRIGINE
  6. JUNEL FE 1/20 [Concomitant]
     Active Substance: ETHINYL ESTRADIOL\NORETHINDRONE ACETATE
  7. SUMATRIPTAN [Concomitant]
     Active Substance: SUMATRIPTAN
  8. METFORMIN [Concomitant]
     Active Substance: METFORMIN HYDROCHLORIDE
  9. AMLODIPINE [Concomitant]
     Active Substance: AMLODIPINE BESYLATE
  10. TYLENOL EXTRA STRENGTH [Concomitant]
     Active Substance: ACETAMINOPHEN
  11. ADVIL [Concomitant]
     Active Substance: IBUPROFEN
  12. VITAMIN B COMPLEX [Concomitant]
     Active Substance: CYANOCOBALAMIN\DEXPANTHENOL\NIACINAMIDE\PYRIDOXINE HYDROCHLORIDE\RIBOFLAVIN 5^-PHOSPHATE SODIUM\THIA
  13. MAGNESIUM [Concomitant]
     Active Substance: MAGNESIUM
  14. VITAMIN D3 [Concomitant]
     Active Substance: CHOLECALCIFEROL
  15. PROBIOTICS NOS [Concomitant]
     Active Substance: PROBIOTICS NOS
  16. Claratin 24th [Concomitant]

REACTIONS (6)
  - Back pain [None]
  - Arthralgia [None]
  - Pain in extremity [None]
  - Arthralgia [None]
  - Pain in extremity [None]
  - Pain [None]

NARRATIVE: CASE EVENT DATE: 20250513
